FAERS Safety Report 6114175-X (Version None)
Quarter: 2009Q1

REPORT INFORMATION
  Report Type: 
  Country: None (occurrence: None)
  Receive Date: 20090312
  Receipt Date: 20080509
  Transmission Date: 20090719
  Serious: No
  Sender: FDA-Public Use
  Company Number: US-ABBOTT-08P-163-0451273-00

PATIENT
  Age: 8 Year
  Sex: Female

DRUGS (3)
  1. DEPAKOTE [Suspect]
     Indication: BIPOLAR DISORDER
     Route: 048
     Dates: start: 20080201
  2. DEPAKOTE [Suspect]
  3. RIZATRIPTAN BENZOATE [Concomitant]
     Indication: MIGRAINE
     Route: 048

REACTIONS (1)
  - ALOPECIA [None]
